FAERS Safety Report 5367302-6 (Version None)
Quarter: 2007Q2

REPORT INFORMATION
  Report Type: 
  Country: None (occurrence: None)
  Receive Date: 20070622
  Receipt Date: 20060817
  Transmission Date: 20071010
  Serious: No
  Sender: FDA-Public Use
  Company Number: US-ASTRAZENECA-2002UW10640

PATIENT
  Age: 79 Year
  Sex: Female
  Weight: 49 kg

DRUGS (11)
  1. PULMICORT [Suspect]
     Route: 055
     Dates: start: 20020701
  2. PULMICORT RESPULES [Suspect]
     Indication: ASTHMA
     Route: 055
     Dates: start: 20040801
  3. PULMICORT RESPULES [Suspect]
     Indication: BRONCHITIS
     Route: 055
     Dates: start: 20040801
  4. PULMICORT RESPULES [Suspect]
     Indication: EMPHYSEMA
     Route: 055
     Dates: start: 20040801
  5. ZOCOR [Concomitant]
  6. NITROGLYCERIN [Concomitant]
  7. LISINOPRIL [Concomitant]
  8. LORAZEPAM [Concomitant]
  9. SINGULAIR [Concomitant]
  10. AMOXICILLIN W/CLAVULANATE POTASSIUM [Concomitant]
  11. NEOPOLYDEX [Concomitant]

REACTIONS (8)
  - DRY EYE [None]
  - EYE HAEMORRHAGE [None]
  - EYE PAIN [None]
  - EYE SWELLING [None]
  - EYELID DISORDER [None]
  - FOREIGN BODY SENSATION IN EYES [None]
  - VISUAL ACUITY REDUCED [None]
  - WEIGHT INCREASED [None]
